FAERS Safety Report 4339987-4 (Version None)
Quarter: 2004Q2

REPORT INFORMATION
  Report Type: 
  Country: None (occurrence: None)
  Receive Date: 20040416
  Receipt Date: 20040407
  Transmission Date: 20050107
  Serious: Yes (Hospitalization)
  Sender: FDA-Public Use
  Company Number: PHBS2004NO04846

PATIENT
  Sex: Male

DRUGS (5)
  1. TEGRETOL [Suspect]
     Indication: EPILEPSY
     Dosage: 200 MG, BID
     Route: 048
     Dates: start: 19830101, end: 19940220
  2. TEGRETOL [Suspect]
     Dosage: 400 MG, BID
     Route: 048
     Dates: start: 19940221, end: 20030701
  3. HALOPERIDOL [Concomitant]
     Dates: start: 19860101
  4. LIORESAL ^NOVARTIS^ [Concomitant]
     Dates: start: 19880101
  5. PRONOVAN [Concomitant]

REACTIONS (11)
  - CONCOMITANT DISEASE AGGRAVATED [None]
  - CONVULSION [None]
  - DYSKINESIA [None]
  - ELECTROENCEPHALOGRAM ABNORMAL [None]
  - ENCEPHALOPATHY [None]
  - FALL [None]
  - MEDICATION ERROR [None]
  - MOTOR DYSFUNCTION [None]
  - MUSCLE SPASMS [None]
  - MUSCULAR WEAKNESS [None]
  - MYOCLONUS [None]
